FAERS Safety Report 19793643 (Version 1)
Quarter: 2021Q3

REPORT INFORMATION
  Report Type: Report from Study
  Country: FR (occurrence: FR)
  Receive Date: 20210906
  Receipt Date: 20210906
  Transmission Date: 20211014
  Serious: Yes (Death, Life-Threatening)
  Sender: FDA-Public Use
  Company Number: FR-SERVIER-S21006233

PATIENT

DRUGS (9)
  1. PEGASPARGASE [Suspect]
     Active Substance: PEGASPARGASE
     Indication: ACUTE LYMPHOCYTIC LEUKAEMIA
     Dosage: 2550 IU, (D12, D26)
     Route: 042
     Dates: start: 20210430, end: 20210514
  2. TN UNSPECIFIED [Concomitant]
     Indication: ACUTE LYMPHOCYTIC LEUKAEMIA
     Dosage: 30 MG, D24
     Route: 037
     Dates: start: 20210517
  3. TN UNSPECIFIED [Concomitant]
     Indication: PRODUCT USED FOR UNKNOWN INDICATION
     Dosage: UNK
     Route: 065
  4. TN UNSPECIFIED [Concomitant]
     Indication: ACUTE LYMPHOCYTIC LEUKAEMIA
     Dosage: 15 MG, D24
     Route: 037
     Dates: start: 20210517
  5. TN UNSPECIFIED [VINCRISTINE SULFATE] [Suspect]
     Active Substance: VINCRISTINE SULFATE
     Indication: ACUTE LYMPHOCYTIC LEUKAEMIA
     Dosage: 1.6 MG, (D8, D15, D22, D29)
     Route: 042
     Dates: start: 20210424, end: 20210518
  6. TN UNSPECIFIED [DAUNORUBICIN HYDROCHLORIDE] [Suspect]
     Active Substance: DAUNORUBICIN HYDROCHLORIDE
     Indication: ACUTE LYMPHOCYTIC LEUKAEMIA
     Dosage: 42 MG, (D8, D15, D22, D29)
     Route: 042
     Dates: start: 20210424, end: 20210518
  7. TN UNSPECIFIED [PREDNISOLONE] [Suspect]
     Active Substance: PREDNISOLONE
     Indication: ACUTE LYMPHOCYTIC LEUKAEMIA
     Dosage: 64 MG, (D8 TO 28)
     Route: 048
     Dates: start: 20210424, end: 20210519
  8. TN UNSPECIFIED [Concomitant]
     Indication: ACUTE LYMPHOCYTIC LEUKAEMIA
     Dosage: 12 MG, D24
     Route: 037
     Dates: start: 20210517
  9. TN UNSPECIFIED [CYCLOPHOSPHAMIDE] [Suspect]
     Active Substance: CYCLOPHOSPHAMIDE
     Indication: ACUTE LYMPHOCYTIC LEUKAEMIA
     Dosage: 1140 MG, D9
     Route: 042
     Dates: start: 20210428

REACTIONS (4)
  - Gastrointestinal haemorrhage [Fatal]
  - Multiple organ dysfunction syndrome [Fatal]
  - Varicella [Fatal]
  - Pancreatitis acute [Fatal]

NARRATIVE: CASE EVENT DATE: 20210521
